FAERS Safety Report 21239613 (Version 1)
Quarter: 2022Q3

REPORT INFORMATION
  Report Type: Spontaneous
  Country: US (occurrence: None)
  Receive Date: 20220819
  Receipt Date: 20220819
  Transmission Date: 20221026
  Serious: No
  Sender: FDA-Public Use
  Company Number: None

PATIENT
  Age: 83 Year
  Sex: Male
  Weight: 76.66 kg

DRUGS (12)
  1. CAPECITABINE [Suspect]
     Active Substance: CAPECITABINE
     Indication: Breast cancer male
     Dosage: FREQUENCY : TWICE A DAY;?
     Route: 048
  2. ANASTROZOLE [Concomitant]
     Active Substance: ANASTROZOLE
  3. CALCIUM CARBONATE [Concomitant]
     Active Substance: CALCIUM CARBONATE
  4. CANNABIDIOL [Concomitant]
     Active Substance: CANNABIDIOL
  5. CLINDAMYCIN [Concomitant]
     Active Substance: CLINDAMYCIN
  6. CLOTRIMAZOLE [Concomitant]
     Active Substance: CLOTRIMAZOLE
  7. DOXIL GLUCOSAMINE [Concomitant]
  8. IBUPROFEN [Concomitant]
     Active Substance: IBUPROFEN
  9. MINOXIDIL [Concomitant]
     Active Substance: MINOXIDIL
  10. PROBIOTICS NOS [Concomitant]
     Active Substance: PROBIOTICS NOS
  11. VITAMIN D3 [Concomitant]
     Active Substance: CHOLECALCIFEROL
  12. XGEVA [Concomitant]
     Active Substance: DENOSUMAB

REACTIONS (1)
  - Disease progression [None]
